FAERS Safety Report 21003463 (Version 1)
Quarter: 2022Q2

REPORT INFORMATION
  Report Type: Spontaneous
  Country: US (occurrence: US)
  Receive Date: 20220624
  Receipt Date: 20220624
  Transmission Date: 20220721
  Serious: No
  Sender: FDA-Public Use
  Company Number: US-BRISTOL-MYERS SQUIBB COMPANY-2022-062798

PATIENT
  Age: 88 Year
  Sex: Male

DRUGS (1)
  1. REVLIMID [Suspect]
     Active Substance: LENALIDOMIDE
     Indication: Gastrointestinal inflammation
     Dosage: FREQUENCY: FOR 21 DAYS THEN 7 DAYS OFF
     Route: 048
     Dates: start: 20210809

REACTIONS (2)
  - Platelet count decreased [Unknown]
  - Intentional product use issue [Unknown]
